FAERS Safety Report 4952414-9 (Version None)
Quarter: 2006Q1

REPORT INFORMATION
  Report Type: 
  Country: None (occurrence: None)
  Receive Date: 20060317
  Receipt Date: 20060306
  Transmission Date: 20060701
  Serious: Yes (Hospitalization)
  Sender: FDA-Public Use
  Company Number: 2005EU002136

PATIENT
  Age: 29 Year
  Sex: Male

DRUGS (4)
  1. FK506 (TACROLIMUS CAPSULES) [Suspect]
     Indication: RENAL TRANSPLANT
     Dosage: 2.00 MG BID ORAL
     Route: 048
     Dates: start: 20040428
  2. DACLIZUMAB (DACLIZUMAB) [Suspect]
     Indication: RENAL TRANSPLANT
     Dosage: 2.00 MG /D ORAL
     Route: 048
     Dates: start: 20040428, end: 20040622
  3. PREDNISONE TAB [Suspect]
     Indication: RENAL TRANSPLANT
     Dosage: 5.00 MG
     Dates: start: 20040502
  4. MYCOPHENOLATE MOFETIL [Suspect]
     Dosage: 250 MG ORAL
     Route: 048
     Dates: start: 20040428

REACTIONS (1)
  - URETERIC STENOSIS [None]
